FAERS Safety Report 4750273-0 (Version None)
Quarter: 2005Q3

REPORT INFORMATION
  Report Type: 
  Country: None (occurrence: None)
  Receive Date: 20050818
  Receipt Date: 20050808
  Transmission Date: 20060218
  Serious: Yes (Death)
  Sender: FDA-Public Use
  Company Number: 2005EU001770

PATIENT
  Age: 15 Year
  Sex: Male

DRUGS (4)
  1. PROGRAF [Suspect]
     Indication: LIVER TRANSPLANT
  2. PREDNISONE [Suspect]
     Indication: LIVER TRANSPLANT
  3. MYCOPHENOLATE MOFETIL (MYCOPHENOLATE MOFETIL (MYCOPHENOLATE MOFETIL) [Concomitant]
  4. ANTIBIOTICS [Concomitant]

REACTIONS (8)
  - ASPERGILLOSIS [None]
  - AUTOIMMUNE HEPATITIS [None]
  - CHOLANGITIS [None]
  - HAEMOPTYSIS [None]
  - HYDROPNEUMOTHORAX [None]
  - LUNG DISORDER [None]
  - PSEUDOMONAS INFECTION [None]
  - RESPIRATORY FAILURE [None]
